FAERS Safety Report 23649908 (Version 1)
Quarter: 2024Q1

REPORT INFORMATION
  Report Type: Spontaneous
  Country: US (occurrence: None)
  Receive Date: 20240319
  Receipt Date: 20240319
  Transmission Date: 20240410
  Serious: No
  Sender: FDA-Public Use
  Company Number: US-ROCHE-3375626

PATIENT
  Sex: Female
  Weight: 81.72 kg

DRUGS (1)
  1. ERIVEDGE [Suspect]
     Active Substance: VISMODEGIB
     Indication: Basal cell carcinoma
     Dosage: ONE A DAY ;ONGOING: NO
     Route: 065
     Dates: start: 20230202

REACTIONS (1)
  - Alopecia [Unknown]
